FAERS Safety Report 8976143 (Version 1)
Quarter: 2012Q4

REPORT INFORMATION
  Report Type: Report from Study
  Country: CA (occurrence: CA)
  Receive Date: 20121220
  Receipt Date: 20121220
  Transmission Date: 20130627
  Serious: Yes (Hospitalization, Other)
  Sender: FDA-Public Use
  Company Number: CA-ROCHE-1169288

PATIENT
  Age: 51 Year
  Sex: Male
  Weight: 124.62 kg

DRUGS (10)
  1. OMALIZUMAB [Suspect]
     Indication: ASTHMA
     Route: 058
     Dates: start: 20050803
  2. OMALIZUMAB [Suspect]
     Route: 058
     Dates: start: 20091001
  3. SYMBICORT [Suspect]
     Indication: PRODUCT USED FOR UNKNOWN INDICATION
     Dosage: Dose: 5 puffs
     Route: 065
  4. SYMBICORT [Suspect]
     Dosage: Dose: 8-10 puffs
     Route: 065
  5. PULMICORT [Concomitant]
  6. MICARDIS [Concomitant]
  7. CELEBREX [Concomitant]
  8. FOSAMAX [Concomitant]
  9. VERAPAMIL [Concomitant]
  10. CHLORAMINE [Concomitant]

REACTIONS (21)
  - Lung infection [Unknown]
  - Sleep disorder [Unknown]
  - Nasal congestion [Unknown]
  - Malaise [Recovering/Resolving]
  - Vertigo [Unknown]
  - Blood pressure increased [Unknown]
  - Heart rate decreased [Unknown]
  - Bronchitis [Unknown]
  - Viral infection [Recovering/Resolving]
  - Influenza like illness [Recovering/Resolving]
  - Peak expiratory flow rate decreased [Unknown]
  - Dizziness [Recovering/Resolving]
  - Rash [Unknown]
  - Weight increased [Unknown]
  - Sinusitis [Recovering/Resolving]
  - Atrial fibrillation [Unknown]
  - Asthma [Unknown]
  - Weight decreased [Unknown]
  - Arthritis [Recovering/Resolving]
  - Pneumonia [Recovering/Resolving]
  - Tachycardia [Recovered/Resolved]
